FAERS Safety Report 25752498 (Version 1)
Quarter: 2025Q3

REPORT INFORMATION
  Report Type: Spontaneous
  Country: US (occurrence: None)
  Receive Date: 20250815
  Receipt Date: 20250815
  Transmission Date: 20251021
  Serious: Yes (Life-Threatening, Hospitalization)
  Sender: FDA-CTU
  Company Number: None

PATIENT
  Age: 73 Year
  Sex: Female

DRUGS (2)
  1. LOSARTAN [Suspect]
     Active Substance: LOSARTAN
  2. SULFAMETHOXAZOLE\TRIMETHOPRIM [Suspect]
     Active Substance: SULFAMETHOXAZOLE\TRIMETHOPRIM

REACTIONS (7)
  - Hypervolaemia [None]
  - Fall [None]
  - Acute kidney injury [None]
  - Escherichia test positive [None]
  - Mental status changes [None]
  - Blood potassium increased [None]
  - Urinary tract infection [None]

NARRATIVE: CASE EVENT DATE: 20240111
